FAERS Safety Report 7498622-7 (Version None)
Quarter: 2011Q2

REPORT INFORMATION
  Report Type: 
  Country: None (occurrence: None)
  Receive Date: 20110524
  Receipt Date: 20110506
  Transmission Date: 20111010
  Serious: Yes (Other)
  Sender: FDA-Public Use
  Company Number: US-BAYER-2011-022037

PATIENT
  Age: 32 Year
  Sex: Female
  Weight: 46.712 kg

DRUGS (11)
  1. YASMIN [Suspect]
     Indication: METRORRHAGIA
     Dosage: UNK
     Dates: start: 20090520
  2. FLUTICASONE PROPIONATE [Concomitant]
     Dosage: 50 MCG/24HR, UNK
     Route: 045
  3. PREDNISONE [Concomitant]
     Dosage: 50 MG, UNK
     Route: 048
  4. ADVAIR DISKUS 100/50 [Concomitant]
     Dosage: 250 ?G, UNK
     Route: 055
  5. VENTOLIN HFA [Concomitant]
     Dosage: 90 MCG/24HR, UNK
     Route: 055
     Dates: start: 19930101
  6. YAZ [Suspect]
     Indication: METRORRHAGIA
     Dosage: UNK
     Dates: start: 20080402, end: 20080619
  7. ZOLPIDEM TARTRATE [Concomitant]
     Dosage: 5 MG, UNK
     Route: 048
  8. CLINDESSE [Concomitant]
     Dosage: 2 %, UNK
     Route: 067
  9. PROZAC [Concomitant]
     Route: 048
  10. MULTI-VITAMINS [Concomitant]
     Route: 048
  11. CHANTIX [Concomitant]
     Dosage: 5 MG, UNK
     Route: 048

REACTIONS (1)
  - CHOLECYSTECTOMY [None]
